FAERS Safety Report 5764712-X (Version None)
Quarter: 2008Q2

REPORT INFORMATION
  Report Type: 
  Country: None (occurrence: None)
  Receive Date: 20080611
  Receipt Date: 20080527
  Transmission Date: 20081010
  Serious: Yes (Hospitalization, Other)
  Sender: FDA-Public Use
  Company Number: FR-ELI_LILLY_AND_COMPANY-FR200805005122

PATIENT
  Sex: Female

DRUGS (14)
  1. GEMZAR [Suspect]
     Indication: HODGKIN'S DISEASE
     Dosage: 1025 KIU, UNKNOWN
     Route: 042
     Dates: end: 20080421
  2. MYOCET [Concomitant]
     Dosage: 45 MG, UNKNOWN
     Route: 042
  3. ORACILLINE [Concomitant]
     Dosage: UNK, UNKNOWN
     Route: 065
  4. ZELITREX [Concomitant]
     Dosage: UNK, UNKNOWN
     Route: 065
  5. BACTRIM [Concomitant]
     Dosage: UNK, UNKNOWN
     Route: 065
  6. FOLIC ACID [Concomitant]
     Dosage: UNK, UNKNOWN
     Route: 065
  7. LYRICA [Concomitant]
     Dosage: UNK, UNKNOWN
     Route: 065
     Dates: start: 20080401, end: 20080401
  8. LEXOMIL [Concomitant]
     Dosage: UNK, UNKNOWN
     Route: 065
  9. PANTOPRAZOLE SODIUM [Concomitant]
     Dosage: UNK, UNKNOWN
     Route: 065
  10. DIFFU K [Concomitant]
     Dosage: UNK, UNKNOWN
     Route: 065
  11. PREDNISONE [Concomitant]
     Dosage: UNK, UNKNOWN
     Route: 065
  12. DESLORATADINE [Concomitant]
     Dosage: UNK, UNKNOWN
     Route: 065
  13. PROGESTERONE [Concomitant]
     Dosage: UNK, UNKNOWN
     Route: 065
  14. OESCLIM [Concomitant]
     Dosage: UNK, UNKNOWN
     Route: 065

REACTIONS (7)
  - CATHETER BACTERAEMIA [None]
  - CHILLS [None]
  - HYPERTHERMIA [None]
  - HYPOKALAEMIA [None]
  - ORTHOSTATIC HYPOTENSION [None]
  - RASH [None]
  - SYNCOPE [None]
